FAERS Safety Report 8431128-7 (Version None)
Quarter: 2012Q2

REPORT INFORMATION
  Report Type: 
  Country: None (occurrence: None)
  Receive Date: 20120612
  Receipt Date: 20120607
  Transmission Date: 20120825
  Serious: Yes (Other)
  Sender: FDA-Public Use
  Company Number: JP-MERCK-1206USA01493

PATIENT
  Age: 50 Year
  Sex: Female

DRUGS (1)
  1. FOSAPREPITANT DIMEGLUMINE [Suspect]
     Indication: PROPHYLAXIS OF NAUSEA AND VOMITING
     Route: 041

REACTIONS (3)
  - INJECTION SITE VASCULITIS [None]
  - INJECTION SITE PAIN [None]
  - INJECTION SITE INDURATION [None]
